FAERS Safety Report 8649939 (Version 2)
Quarter: 2014Q1

REPORT INFORMATION
  Report Type: Spontaneous
  Country: US (occurrence: US)
  Receive Date: 20120705
  Receipt Date: 20140106
  Transmission Date: 20141002
  Serious: Yes (Death, Hospitalization)
  Sender: FDA-Public Use
  Company Number: US-B.I. PHARMACEUTICALS,INC./RIDGEFIELD-2012-BP-14822BP

PATIENT
  Age: 71 Year
  Sex: Female
  Weight: 58.06 kg

DRUGS (17)
  1. PRADAXA [Suspect]
     Indication: ATRIAL FIBRILLATION
     Dosage: 300 MG
     Dates: start: 20110303, end: 20110322
  2. ALIGN [Concomitant]
  3. ALENDRONATE [Concomitant]
  4. ASACOL [Concomitant]
  5. DILTIAZEM [Concomitant]
  6. ISOSORBIDE DINITRATE [Concomitant]
  7. LASIX [Concomitant]
  8. LOSARTAN [Concomitant]
  9. MELATONIN [Concomitant]
  10. METOPROLOL [Concomitant]
  11. NEXIUM [Concomitant]
  12. POTASSIUM CHLORIDE [Concomitant]
  13. PRAVASTATIN [Concomitant]
  14. SINGULAIR [Concomitant]
  15. SYMBICORT [Concomitant]
  16. XOPENEX [Concomitant]
  17. VITAMIN D [Concomitant]

REACTIONS (3)
  - Subarachnoid haemorrhage [Fatal]
  - Ruptured cerebral aneurysm [Fatal]
  - Cardio-respiratory arrest [Fatal]
